FAERS Safety Report 4618075-3 (Version None)
Quarter: 2005Q1

REPORT INFORMATION
  Report Type: 
  Country: None (occurrence: None)
  Receive Date: 20050322
  Receipt Date: 20050308
  Transmission Date: 20050727
  Serious: Yes (Other)
  Sender: FDA-Public Use
  Company Number: DSA_26005_2005

PATIENT
  Sex: Female

DRUGS (3)
  1. RENIVACE [Suspect]
     Indication: CARDIAC FAILURE
     Dosage: DF UNK PO
     Route: 048
     Dates: start: 20050202, end: 20050209
  2. ASPIRIN [Concomitant]
  3. LASIX [Concomitant]

REACTIONS (1)
  - WHITE BLOOD CELL COUNT DECREASED [None]
